FAERS Safety Report 10028229 (Version 1)
Quarter: 2014Q1

REPORT INFORMATION
  Report Type: Spontaneous
  Country: US (occurrence: None)
  Receive Date: 20140319
  Receipt Date: 20140319
  Transmission Date: 20141002
  Serious: Yes (Hospitalization, Other)
  Sender: FDA-Public Use
  Company Number: US-ZYDUS-002747

PATIENT
  Age: 61 Year
  Sex: Male

DRUGS (1)
  1. WARFARIN [Suspect]
     Dosage: 5.00-MG-2.00 TIMES / PER-1.0DAYS

REACTIONS (9)
  - Lower gastrointestinal haemorrhage [None]
  - Epistaxis [None]
  - Prothrombin time prolonged [None]
  - Gastrooesophageal reflux disease [None]
  - Condition aggravated [None]
  - International normalised ratio increased [None]
  - Haematuria [None]
  - Drug dispensing error [None]
  - Drug dispensing error [None]
